FAERS Safety Report 9147565 (Version 1)
Quarter: 2013Q1

REPORT INFORMATION
  Report Type: Spontaneous
  Country: GB (occurrence: GB)
  Receive Date: 20130307
  Receipt Date: 20130307
  Transmission Date: 20140127
  Serious: Yes (Hospitalization)
  Sender: FDA-Public Use
  Company Number: GB-009507513-1302GBR013041

PATIENT
  Age: 70 Year
  Sex: Male

DRUGS (2)
  1. SIMVASTATIN [Suspect]
     Indication: HYPERLIPIDAEMIA
     Dosage: UNK
     Route: 048
     Dates: start: 2004
  2. METHOTREXATE [Concomitant]

REACTIONS (2)
  - Volvulus [Recovered/Resolved]
  - Functional gastrointestinal disorder [Recovered/Resolved]
